FAERS Safety Report 9166945 (Version 1)
Quarter: 2013Q1

REPORT INFORMATION
  Report Type: Spontaneous
  Country: US (occurrence: US)
  Receive Date: 20130317
  Receipt Date: 20130317
  Transmission Date: 20140127
  Serious: Yes (Hospitalization)
  Sender: FDA-Public Use
  Company Number: US-B.I. PHARMACEUTICALS,INC./RIDGEFIELD-2012-BI-03814BP

PATIENT
  Age: 83 None
  Sex: Male

DRUGS (14)
  1. SPIRIVA [Suspect]
     Indication: CHRONIC OBSTRUCTIVE PULMONARY DISEASE
     Dosage: 36 MCG
     Route: 055
     Dates: start: 20121204, end: 20121211
  2. SPIRIVA [Suspect]
     Indication: DYSPNOEA
  3. MUCINEX DM [Concomitant]
     Indication: COUGH
     Route: 048
     Dates: start: 20130226
  4. LEVALBUTEROL [Concomitant]
     Indication: CHRONIC OBSTRUCTIVE PULMONARY DISEASE
     Dosage: 1.26 MG
     Route: 055
     Dates: start: 201301
  5. DIGOXIN [Concomitant]
     Indication: CARDIAC DISORDER
     Route: 055
  6. NITROGLYCERIN [Concomitant]
     Indication: CARDIAC DISORDER
     Route: 055
  7. HYDROCHLOROTHIAZIDE [Concomitant]
     Indication: DIURETIC THERAPY
  8. CRESTOR [Concomitant]
     Indication: BLOOD CHOLESTEROL ABNORMAL
     Dosage: 10 MG
  9. WARFARIN [Concomitant]
     Indication: ANTICOAGULANT THERAPY
  10. ISOSORBIDE MONONITRATE [Concomitant]
     Indication: ANGINA PECTORIS
     Dosage: 120 MG
  11. METOPROLOL TARTRATE [Concomitant]
     Indication: HYPERTENSION
     Dosage: 10 MG
  12. LEVOXYL [Concomitant]
     Indication: THYROID DISORDER
     Dosage: 75 MCG
  13. ADVAIR [Concomitant]
     Indication: CHRONIC OBSTRUCTIVE PULMONARY DISEASE
  14. ADVAIR [Concomitant]
     Indication: DYSPNOEA

REACTIONS (7)
  - Dyspnoea [Recovered/Resolved]
  - Pneumonia [Not Recovered/Not Resolved]
  - Dysphonia [Not Recovered/Not Resolved]
  - Candida infection [Recovered/Resolved]
  - Cough [Not Recovered/Not Resolved]
  - Pneumonia [Recovered/Resolved]
  - Adverse event [Unknown]
